FAERS Safety Report 8269158-0 (Version None)
Quarter: 2012Q2

REPORT INFORMATION
  Report Type: 
  Country: None (occurrence: None)
  Receive Date: 20120409
  Receipt Date: 20120328
  Transmission Date: 20120825
  Serious: No
  Sender: FDA-Public Use
  Company Number: US-B.I. PHARMACEUTICALS,INC./RIDGEFIELD-2012-BP-05890BP

PATIENT
  Age: 66 Year
  Sex: Male

DRUGS (1)
  1. PRADAXA [Suspect]
     Indication: ATRIAL FIBRILLATION
     Dates: start: 20120101

REACTIONS (3)
  - ABDOMINAL DISCOMFORT [None]
  - SENSATION OF FOREIGN BODY [None]
  - DYSPEPSIA [None]
